FAERS Safety Report 6306167-2 (Version None)
Quarter: 2009Q3

REPORT INFORMATION
  Report Type: 
  Country: None (occurrence: None)
  Receive Date: 20090812
  Receipt Date: 20090804
  Transmission Date: 20100115
  Serious: Yes (Other)
  Sender: FDA-Public Use
  Company Number: US-ROCHE-639950

PATIENT
  Sex: Female
  Weight: 73.9 kg

DRUGS (7)
  1. PEGASYS [Suspect]
     Indication: HEPATITIS C
     Route: 058
     Dates: start: 20090529, end: 20090605
  2. COPEGUS [Suspect]
     Indication: HEPATITIS C
     Route: 048
     Dates: start: 20090529, end: 20090605
  3. LISINOPRIL [Concomitant]
  4. ASTELIN [Concomitant]
     Dosage: FORM SPRAY
  5. COQ-10 [Concomitant]
  6. FOLIC ACID [Concomitant]
  7. MULTIVITAMIN NOS [Concomitant]
     Route: 065

REACTIONS (1)
  - LEUKOCYTOCLASTIC VASCULITIS [None]
